FAERS Safety Report 22274064 (Version 5)
Quarter: 2023Q2

REPORT INFORMATION
  Report Type: Report from Study
  Country: GB (occurrence: GB)
  Receive Date: 20230502
  Receipt Date: 20230623
  Transmission Date: 20230721
  Serious: Yes (Hospitalization)
  Sender: FDA-Public Use
  Company Number: GB-ROCHE-3311116

PATIENT
  Age: 72 Year
  Sex: Male
  Weight: 87 kg

DRUGS (2)
  1. BEVACIZUMAB [Suspect]
     Active Substance: BEVACIZUMAB
     Indication: Hepatocellular carcinoma
     Dosage: 1400MG
     Route: 065
     Dates: start: 20221104
  2. ATEZOLIZUMAB [Suspect]
     Active Substance: ATEZOLIZUMAB
     Indication: Hepatocellular carcinoma
     Dosage: 1200 MG, EVERY 3 WEEKS, START DATE OF MOST RECENT DOSE OF STUDY DRUG PRIOR TO AE/SAE: 28/MAR/2023
     Route: 041
     Dates: start: 20221104

REACTIONS (2)
  - Hypophysitis [Recovered/Resolved]
  - Hypothyroidism [Not Recovered/Not Resolved]

NARRATIVE: CASE EVENT DATE: 20230227
